FAERS Safety Report 9543647 (Version 1)
Quarter: 2013Q2

REPORT INFORMATION
  Report Type: Spontaneous
  Country: US (occurrence: None)
  Receive Date: 20130529
  Receipt Date: 20130529
  Transmission Date: 20140414
  Serious: Yes (Other)
  Sender: FDA-Public Use
  Company Number: EUS-2013-00059

PATIENT
  Sex: Male

DRUGS (2)
  1. QUADRAMET (SAMARIUM (153 SM) LEXIDRONAM) [Suspect]
     Indication: METASTASES TO BONE
     Dosage: :1) QUADRAMET (18.5 MBQ/KG (0.5 MCI/KG) IN WEEK 1 AND?WEEK 3,INTRAVENOUS (NOT OTHERWISE SPECIFIED)?2) 37 MBQ/KG (1.0 MCI/KG) IN WEEK 15,INTRAVENOUS (NOT?OTHERWISE SPECIFIED)
  2. ZOMETA (ZOLEDRONIC ACID) (ZOLEDRONIC ACID) [Concomitant]

REACTIONS (1)
  - Thrombocytopenia [None]
